FAERS Safety Report 8370115-4 (Version None)
Quarter: 2012Q2

REPORT INFORMATION
  Report Type: 
  Country: None (occurrence: None)
  Receive Date: 20120518
  Receipt Date: 20120510
  Transmission Date: 20120825
  Serious: No
  Sender: FDA-Public Use
  Company Number: US-B.I. PHARMACEUTICALS,INC./RIDGEFIELD-2012-BP-10542BP

PATIENT
  Sex: Female

DRUGS (23)
  1. ASPIRIN [Concomitant]
     Indication: PROPHYLAXIS
  2. ZYRTEC [Concomitant]
     Indication: HYPERSENSITIVITY
     Route: 048
  3. COMBIVENT [Suspect]
     Indication: CHRONIC OBSTRUCTIVE PULMONARY DISEASE
     Dosage: 8 PUF
     Route: 055
  4. PREDNISONE [Concomitant]
     Indication: BRONCHITIS
     Dosage: 5 MG
     Route: 048
  5. VITAMIN A [Concomitant]
     Indication: SUPPLEMENTATION THERAPY
  6. FLEXERIL [Concomitant]
     Indication: FIBROMYALGIA
     Dosage: 40 MG
     Route: 048
  7. CITALOPRAM HYDROBROMIDE [Concomitant]
     Indication: DEPRESSION
     Dosage: 40 MG
     Route: 048
  8. LISINOPRIL [Concomitant]
     Indication: HYPERTENSION
  9. NEURONTIN [Concomitant]
     Indication: FIBROMYALGIA
     Dosage: 300 MG
     Route: 048
  10. XANAX [Concomitant]
     Indication: ANXIETY
     Dosage: 200 MG
     Route: 048
  11. ACCOLATE [Concomitant]
     Indication: ASTHMA
     Dosage: 40 MG
     Route: 048
  12. FISH OIL [Concomitant]
     Indication: SUPPLEMENTATION THERAPY
  13. NAPROXEN [Concomitant]
     Indication: GOUT
     Dosage: 1000 MG
     Route: 048
  14. NEXIUM [Concomitant]
     Indication: GASTROOESOPHAGEAL REFLUX DISEASE
     Dosage: 40 MG
     Route: 048
  15. VITAMIN D [Concomitant]
     Indication: SUPPLEMENTATION THERAPY
  16. ZOCOR [Concomitant]
     Indication: BLOOD CHOLESTEROL INCREASED
     Dosage: 40 MG
     Route: 048
  17. AMBIEN [Concomitant]
     Indication: SLEEP DISORDER
  18. CLARITIN [Concomitant]
     Indication: HYPERSENSITIVITY
     Route: 048
  19. MULTI-VITAMIN [Concomitant]
     Indication: SUPPLEMENTATION THERAPY
  20. THEOPHYLLINE [Concomitant]
     Indication: BRONCHITIS
     Dosage: 600 MG
     Route: 048
  21. SPIRIVA [Suspect]
     Indication: CHRONIC OBSTRUCTIVE PULMONARY DISEASE
     Dosage: 18 MCG
     Route: 055
     Dates: start: 20090101
  22. ADVAIR DISKUS 100/50 [Concomitant]
     Indication: ASTHMA
  23. COLCRYS [Concomitant]
     Indication: GOUT

REACTIONS (6)
  - PNEUMONIA [None]
  - FALL [None]
  - CONCUSSION [None]
  - LACERATION [None]
  - BRONCHITIS [None]
  - PARANASAL SINUS HYPERSECRETION [None]
